FAERS Safety Report 14589573 (Version 4)
Quarter: 2018Q2

REPORT INFORMATION
  Report Type: Spontaneous
  Country: FR (occurrence: FR)
  Receive Date: 20180302
  Receipt Date: 20180416
  Transmission Date: 20180711
  Serious: Yes (Other)
  Sender: FDA-Public Use
  Company Number: FR-009507513-1803FRA000570

PATIENT
  Sex: Male
  Weight: 89 kg

DRUGS (2)
  1. KEYTRUDA [Suspect]
     Active Substance: PEMBROLIZUMAB
     Indication: METASTATIC MALIGNANT MELANOMA
     Dosage: 9TH CYCLE
     Route: 042
     Dates: start: 201708, end: 20180219
  2. RITUXIMAB. [Concomitant]
     Active Substance: RITUXIMAB
     Indication: NEPHROPATHY

REACTIONS (2)
  - Chronic kidney disease [Unknown]
  - Focal segmental glomerulosclerosis [Not Recovered/Not Resolved]
